FAERS Safety Report 8901542 (Version 1)
Quarter: 2012Q4

REPORT INFORMATION
  Report Type: 
  Country: US (occurrence: US)
  Receive Date: 20121108
  Receipt Date: 20121108
  Transmission Date: 20130627
  Serious: No
  Sender: FDA-Public Use
  Company Number: US-ASTRAZENECA-2012SE82497

PATIENT
  Age: 57 Year
  Sex: Female

DRUGS (1)
  1. NEXIUM [Suspect]
     Route: 048

REACTIONS (10)
  - Multiple sclerosis [Unknown]
  - Arthralgia [Unknown]
  - Musculoskeletal pain [Unknown]
  - Mobility decreased [Unknown]
  - Peroneal nerve palsy [Unknown]
  - Effusion [Unknown]
  - Arthritis [Unknown]
  - Cystitis interstitial [Unknown]
  - Gastrooesophageal reflux disease [Unknown]
  - Off label use [Unknown]
